FAERS Safety Report 6900139-2 (Version None)
Quarter: 2010Q3

REPORT INFORMATION
  Report Type: 
  Country: None (occurrence: None)
  Receive Date: 20100708
  Receipt Date: 20100405
  Transmission Date: 20110219
  Serious: Yes (Other)
  Sender: FDA-Public Use
  Company Number: 2010043135

PATIENT
  Age: 53 Year
  Sex: Female
  Weight: 59 kg

DRUGS (6)
  1. CHANTIX [Suspect]
     Indication: SMOKING CESSATION THERAPY
     Dosage: 0.5 MG, 1X/DAY, ORAL
     Route: 048
     Dates: start: 20080101, end: 20080101
  2. ATENOLOL [Concomitant]
  3. LISINOPRIL [Concomitant]
  4. NEXIUM [Concomitant]
  5. FOSAMAX [Concomitant]
  6. VANCOMYCIN [Concomitant]

REACTIONS (4)
  - DEPRESSION [None]
  - RETCHING [None]
  - VOMITING [None]
  - WEIGHT DECREASED [None]
